FAERS Safety Report 6221376-9 (Version None)
Quarter: 2009Q2

REPORT INFORMATION
  Report Type: 
  Country: None (occurrence: None)
  Receive Date: 20090610
  Receipt Date: 20090604
  Transmission Date: 20091009
  Serious: Yes (Other)
  Sender: FDA-Public Use
  Company Number: US-ABBOTT-09P-163-0577990-00

PATIENT
  Sex: Female
  Weight: 55.842 kg

DRUGS (6)
  1. HUMIRA [Suspect]
     Indication: RHEUMATOID ARTHRITIS
     Dosage: HELD DOSES X 2
     Route: 058
     Dates: start: 20090401
  2. HUMIRA [Suspect]
     Indication: PSORIASIS
     Dosage: HELD DUE TO SURGERY
  3. HUMIRA [Suspect]
  4. PLAQUENIL [Concomitant]
     Indication: RHEUMATOID ARTHRITIS
  5. MELOXICAM [Concomitant]
     Indication: RHEUMATOID ARTHRITIS
  6. SYNTHROID [Concomitant]
     Indication: HYPOTHYROIDISM

REACTIONS (2)
  - GRAFT LOSS [None]
  - TOOTH FRACTURE [None]
